FAERS Safety Report 23318736 (Version 1)
Quarter: 2023Q4

REPORT INFORMATION
  Report Type: Spontaneous
  Country: US (occurrence: US)
  Receive Date: 20231220
  Receipt Date: 20231220
  Transmission Date: 20240110
  Serious: No
  Sender: FDA-Public Use
  Company Number: US-SA-SAC20231215000187

PATIENT
  Age: 15 Year
  Sex: Male

DRUGS (4)
  1. ALPROLIX [Suspect]
     Active Substance: EFTRENONACOG ALFA
     Indication: Factor IX deficiency
     Dosage: 5500 UNITS (4950-6050), Q10D FOR BREAKTHROUGH BLEEDING
     Route: 042
     Dates: start: 201910
  2. ALPROLIX [Suspect]
     Active Substance: EFTRENONACOG ALFA
     Indication: Factor IX deficiency
     Dosage: 5500 UNITS (4950-6050), Q10D FOR BREAKTHROUGH BLEEDING
     Route: 042
     Dates: start: 201910
  3. ALPROLIX [Suspect]
     Active Substance: EFTRENONACOG ALFA
     Dosage: 5500 UNITS (4950-6050), PRN  FOR BREAKTHROUGH BLEEDING
     Route: 042
     Dates: start: 201910
  4. ALPROLIX [Suspect]
     Active Substance: EFTRENONACOG ALFA
     Dosage: 5500 UNITS (4950-6050), PRN  FOR BREAKTHROUGH BLEEDING
     Route: 042
     Dates: start: 201910

REACTIONS (1)
  - Haemorrhage [Not Recovered/Not Resolved]

NARRATIVE: CASE EVENT DATE: 20231210
